FAERS Safety Report 8208404-6 (Version None)
Quarter: 2012Q1

REPORT INFORMATION
  Report Type: 
  Country: None (occurrence: None)
  Receive Date: 20120314
  Receipt Date: 20120307
  Transmission Date: 20120608
  Serious: Yes (Hospitalization, Other)
  Sender: FDA-Public Use
  Company Number: US-ALLERGAN-1203381US

PATIENT
  Age: 39 Year
  Sex: Female

DRUGS (1)
  1. BOTULINUM TOXIN TYPE A [Suspect]
     Indication: PELVIC PAIN
     Dosage: 100 UNITS, SINGLE
     Route: 030

REACTIONS (1)
  - RECTAL ABSCESS [None]
